FAERS Safety Report 22614233 (Version 2)
Quarter: 2023Q2

REPORT INFORMATION
  Report Type: Report from Study
  Country: US (occurrence: US)
  Receive Date: 20230619
  Receipt Date: 20230620
  Transmission Date: 20230721
  Serious: Yes (Other)
  Sender: FDA-Public Use
  Company Number: US-ABBVIE-5292584

PATIENT
  Sex: Male

DRUGS (1)
  1. VENCLEXTA [Suspect]
     Active Substance: VENETOCLAX
     Indication: Myeloid leukaemia in remission
     Dosage: FORM OF STRENGTH 100 MILLIGRAMS.
     Route: 048
     Dates: start: 202305

REACTIONS (5)
  - Full blood count abnormal [Unknown]
  - Loss of personal independence in daily activities [Unknown]
  - Pallor [Unknown]
  - Bacterial infection [Unknown]
  - Fungal infection [Unknown]

NARRATIVE: CASE EVENT DATE: 20230101
